FAERS Safety Report 8811829 (Version 1)
Quarter: 2012Q4

REPORT INFORMATION
  Report Type: 
  Country: MY (occurrence: MY)
  Receive Date: 20120927
  Receipt Date: 20120927
  Transmission Date: 20130627
  Serious: Yes (Other)
  Sender: FDA-Public Use
  Company Number: MY-VIIV HEALTHCARE LIMITED-B0822750A

PATIENT
  Age: 33 Year
  Sex: Male

DRUGS (3)
  1. COMBIVIR [Suspect]
     Indication: RETROVIRAL INFECTION
     Route: 048
     Dates: start: 201012
  2. EFAVIRENZ [Suspect]
     Indication: RETROVIRAL INFECTION
     Route: 048
  3. AMPHOTERICIN B [Concomitant]
     Indication: PRODUCT USED FOR UNKNOWN INDICATION
     Route: 065

REACTIONS (7)
  - Hallucination [Not Recovered/Not Resolved]
  - Chills [Not Recovered/Not Resolved]
  - Rash maculo-papular [Not Recovered/Not Resolved]
  - Diarrhoea [Not Recovered/Not Resolved]
  - Nausea [Not Recovered/Not Resolved]
  - Pyrexia [Not Recovered/Not Resolved]
  - Chills [Not Recovered/Not Resolved]
